FAERS Safety Report 9922056 (Version 1)
Quarter: 2014Q1

REPORT INFORMATION
  Report Type: Spontaneous
  Country: US (occurrence: None)
  Receive Date: 20140221
  Receipt Date: 20140221
  Transmission Date: 20141002
  Serious: Yes (Life-Threatening, Hospitalization, Other)
  Sender: FDA-Public Use
  Company Number: None

PATIENT
  Age: 50 Year
  Sex: Female
  Weight: 56.7 kg

DRUGS (7)
  1. VENOFER [Suspect]
     Indication: IRON DEFICIENCY ANAEMIA
     Dosage: 12/7 THEN 2ND DOSE 1/17/14?400MG (I THINK) IV BAG  THIS WAS 3RD INFUSION IN 8 WK PERIOD IV
  2. NEXIUM [Concomitant]
  3. DOCUSATE SODIUM [Concomitant]
  4. AMETHIA [Concomitant]
  5. MULTIVIT [Concomitant]
  6. ACAI BERRY [Concomitant]
  7. VITAMIN D3 [Concomitant]

REACTIONS (22)
  - Headache [None]
  - Dizziness [None]
  - Confusional state [None]
  - Myalgia [None]
  - Arthralgia [None]
  - Fatigue [None]
  - Vomiting [None]
  - Diarrhoea [None]
  - Chest discomfort [None]
  - Oropharyngeal pain [None]
  - Local swelling [None]
  - Local swelling [None]
  - Hyperhidrosis [None]
  - Chest pain [None]
  - Loss of consciousness [None]
  - Disturbance in attention [None]
  - Hypoaesthesia [None]
  - Paraesthesia [None]
  - Insomnia [None]
  - Nausea [None]
  - Abdominal discomfort [None]
  - Dysgeusia [None]
